FAERS Safety Report 5158387-0 (Version None)
Quarter: 2006Q4

REPORT INFORMATION
  Report Type: 
  Country: None (occurrence: None)
  Receive Date: 20061128
  Receipt Date: 20060221
  Transmission Date: 20070319
  Serious: Yes (Hospitalization)
  Sender: FDA-Public Use
  Company Number: US-BAYER-200610988BWH

PATIENT
  Age: 59 Year
  Sex: Male
  Weight: 102 kg

DRUGS (45)
  1. SORAFENIB [Suspect]
     Indication: METASTATIC MALIGNANT MELANOMA
     Dosage: TOTAL DAILY DOSE: 800 MG  UNIT DOSE: 200 MG
     Route: 048
     Dates: start: 20060209, end: 20060213
  2. SORAFENIB [Suspect]
     Dosage: UNIT DOSE: 200 MG
     Route: 048
     Dates: start: 20060413, end: 20060429
  3. CARBOPLATIN [Suspect]
     Route: 042
     Dates: start: 20060208, end: 20060208
  4. CARBOPLATIN [Suspect]
     Route: 042
     Dates: start: 20060412, end: 20060412
  5. TAXOL [Suspect]
     Dosage: UNIT DOSE: 225 MG/M2
     Route: 048
     Dates: start: 20060208, end: 20060208
  6. NOVOLOG [Concomitant]
     Indication: DIABETES MELLITUS
     Dates: start: 20050701, end: 20060212
  7. NOVOLOG [Concomitant]
     Dates: start: 20060213
  8. HUMULIN N [Concomitant]
     Indication: DIABETES MELLITUS
     Dates: start: 20050701, end: 20060212
  9. METFORMIN HCL [Concomitant]
     Indication: DIABETES MELLITUS
     Dates: start: 19990101
  10. GLYBURIDE [Concomitant]
     Indication: DIABETES MELLITUS
     Dates: start: 19990101, end: 20060213
  11. METHADONE HCL [Concomitant]
     Indication: NEUROPATHY
     Dates: start: 20060406
  12. METHADONE HCL [Concomitant]
     Dates: start: 20010101, end: 20060406
  13. GABAPENTIN [Concomitant]
     Indication: NEUROPATHY
     Dates: start: 20060213
  14. GABAPENTIN [Concomitant]
     Dates: start: 20000101, end: 20060212
  15. AMITRIPTYLINE HCL [Concomitant]
     Indication: NEUROPATHY
     Dates: start: 20020101
  16. TRIXAICIN CREAM [Concomitant]
     Indication: NEUROPATHY
     Dates: start: 20050701
  17. CARDIZEM [Concomitant]
     Indication: CARDIAC DISORDER
     Dates: start: 20050701, end: 20060323
  18. CARDIZEM [Concomitant]
     Dates: start: 20060327
  19. FUROSEMIDE [Concomitant]
     Indication: CARDIAC DISORDER
     Dates: start: 20060324
  20. FUROSEMIDE [Concomitant]
     Dates: start: 20030101, end: 20060212
  21. FUROSEMIDE [Concomitant]
     Dates: start: 20060212, end: 20060323
  22. POTASSIUM ACETATE [Concomitant]
     Indication: CARDIAC DISORDER
     Dates: start: 20050701
  23. PYRIDOXINE HCL [Concomitant]
     Indication: CARDIAC DISORDER
     Dates: start: 20050701, end: 20060201
  24. PLAVIX [Concomitant]
     Indication: CEREBROVASCULAR ACCIDENT
     Dates: start: 20020101
  25. PENTOXIFYLLINE [Concomitant]
     Indication: CEREBROVASCULAR ACCIDENT
     Dates: start: 20050101, end: 20060101
  26. PENTOXIFYLLINE [Concomitant]
     Dates: start: 20060101
  27. ASPIRIN [Concomitant]
     Indication: CEREBROVASCULAR ACCIDENT
     Dates: start: 20050101
  28. LEVOTHYROXINE SODIUM [Concomitant]
     Indication: THYROID DISORDER
     Dates: start: 19900101
  29. COZAAR [Concomitant]
     Indication: HYPERTENSION
     Dates: start: 20020101
  30. LEXAPRO [Concomitant]
     Indication: DEPRESSION
     Dates: start: 20000101
  31. CLONAZEPAM [Concomitant]
     Indication: DEPRESSION
     Dates: start: 20000101, end: 20060101
  32. TERAZOSIN HCL [Concomitant]
     Indication: PROSTATIC DISORDER
     Dates: start: 19970101, end: 20060212
  33. TERAZOSIN HCL [Concomitant]
     Dates: start: 20060213
  34. NASONEX [Concomitant]
     Indication: SINUS DISORDER
     Dates: start: 20050701
  35. SIMVASTATIN [Concomitant]
     Indication: BLOOD CHOLESTEROL INCREASED
     Dates: start: 20050801, end: 20060212
  36. SIMVASTATIN [Concomitant]
     Dates: start: 20060213
  37. DEXAMETHASONE 4MG TAB [Concomitant]
  38. ZOFRAN [Concomitant]
  39. PEPCID AC [Concomitant]
     Indication: NAUSEA
  40. NOVOLIN N [Concomitant]
     Indication: DIABETES MELLITUS
     Dates: start: 20060213
  41. IMODIUM [Concomitant]
     Indication: DIARRHOEA
     Dates: start: 20060201
  42. NYSTATIN [Concomitant]
     Indication: CANDIDIASIS
     Route: 048
     Dates: start: 20060213, end: 20060305
  43. CEPHALEXIN [Concomitant]
     Indication: INFECTION
     Dates: start: 20060306, end: 20060301
  44. FLUCONAZOLE [Concomitant]
     Indication: CANDIDIASIS
     Dates: start: 20060306
  45. NEUPOGEN [Concomitant]
     Dates: start: 20060308, end: 20060312

REACTIONS (15)
  - ANOREXIA [None]
  - CANDIDIASIS [None]
  - CHILLS [None]
  - DEHYDRATION [None]
  - DIARRHOEA [None]
  - HAEMATOCRIT DECREASED [None]
  - HAEMOGLOBIN DECREASED [None]
  - HYPOTENSION [None]
  - NAUSEA [None]
  - NEUTROPENIA [None]
  - PAIN IN EXTREMITY [None]
  - PLATELET COUNT DECREASED [None]
  - PYREXIA [None]
  - VOMITING [None]
  - WHITE BLOOD CELL COUNT DECREASED [None]
